FAERS Safety Report 11744140 (Version 2)
Quarter: 2016Q1

REPORT INFORMATION
  Report Type: Spontaneous
  Country: CH (occurrence: NL)
  Receive Date: 20151116
  Receipt Date: 20160107
  Transmission Date: 20160525
  Serious: Yes (Hospitalization)
  Sender: FDA-Public Use
  Company Number: CH-LPDUSPRD-20150895

PATIENT
  Age: 77 Year
  Sex: Male

DRUGS (12)
  1. METFRORMIN HYDROCHLORIDE [Concomitant]
     Dosage: DOSE NOT PROVIDED
     Route: 065
  2. ASPIRIN. [Concomitant]
     Active Substance: ASPIRIN
     Dosage: DOSE NOT PROVIDED
     Route: 065
  3. ISOSORBIDE MONONITRATE. [Concomitant]
     Active Substance: ISOSORBIDE MONONITRATE
     Dosage: DOSE NOT PROVIDED
     Route: 065
  4. ATORVASTATIN CALCIUM. [Concomitant]
     Active Substance: ATORVASTATIN CALCIUM
     Dosage: DOSE NOT PROVIDED
     Route: 065
  5. METOPROLOL. [Concomitant]
     Active Substance: METOPROLOL
     Dosage: DOSE NOT PROVIDED
     Route: 065
  6. PANTOZOL [Concomitant]
     Active Substance: PANTOPRAZOLE SODIUM
     Dosage: DOSE NOT PROVIDED
     Route: 065
  7. TAMSULOSIN [Concomitant]
     Active Substance: TAMSULOSIN
     Dosage: DOSE NOT PROVIDED
     Route: 065
  8. GREPIG (AS REPORTED, NOT FURTHER SPECIFIED) [Concomitant]
     Dosage: DOSE NOT PROVIDED
     Route: 065
  9. FERINJECT [Suspect]
     Active Substance: FERRIC CARBOXYMALTOSE
     Dosage: 300 MG
     Route: 041
     Dates: start: 20150915, end: 20150915
  10. NOVOMIX [Concomitant]
     Active Substance: INSULIN ASPART
     Dosage: DOSE NOT PROVIDED
     Route: 065
  11. FUROSEMIDE. [Concomitant]
     Active Substance: FUROSEMIDE
     Dosage: NOT PROVIDED
     Route: 065
  12. CITALOPRAM [Concomitant]
     Active Substance: CITALOPRAM HYDROBROMIDE
     Dosage: DOSE NOT PROVIDED
     Route: 065

REACTIONS (4)
  - Bradycardia [Recovered/Resolved]
  - Hypotension [Recovered/Resolved]
  - Disturbance in attention [Recovered/Resolved]
  - Dizziness [Recovered/Resolved]

NARRATIVE: CASE EVENT DATE: 20150915
